FAERS Safety Report 7221474-7 (Version None)
Quarter: 2011Q1

REPORT INFORMATION
  Report Type: 
  Country: None (occurrence: None)
  Receive Date: 20110112
  Receipt Date: 20101223
  Transmission Date: 20110831
  Serious: No
  Sender: FDA-Public Use
  Company Number: US-B.I. PHARMACEUTICALS,INC./RIDGEFIELD-2011-BP-00065BP

PATIENT
  Sex: Male

DRUGS (1)
  1. PRADAXA [Suspect]
     Dosage: 300 MG
     Route: 048
     Dates: start: 20101214, end: 20101221

REACTIONS (4)
  - DYSPEPSIA [None]
  - DYSPNOEA [None]
  - OESOPHAGEAL PAIN [None]
  - CHEST PAIN [None]
